FAERS Safety Report 7170949-8 (Version None)
Quarter: 2010Q4

REPORT INFORMATION
  Report Type: 
  Country: None (occurrence: None)
  Receive Date: 20101217
  Receipt Date: 20101210
  Transmission Date: 20110411
  Serious: Yes (Hospitalization)
  Sender: FDA-Public Use
  Company Number: US-TYCO HEALTHCARE/MALLINCKRODT-T201002425

PATIENT
  Age: 32 Year
  Sex: Male

DRUGS (9)
  1. MORPHINE [Suspect]
     Indication: PAIN
     Dosage: 8 MG EVERY 8 HRS
     Route: 042
  2. MORPHINE [Suspect]
     Dosage: 4 MG EVERY 3 HRS
     Route: 042
  3. MORPHINE [Suspect]
     Dosage: 8 MG EVERY 3 HRS
     Route: 042
  4. HYDROMORPHONE HCL [Suspect]
     Indication: PAIN
     Dosage: 6 MG EVERY 3 HRS
  5. HYDROMORPHONE HCL [Suspect]
     Dosage: 8 MG EVERY 3 HRS
  6. OXYCODONE HCL AND ACETAMINOPHEN [Suspect]
     Indication: PAIN
     Dosage: UNK
  7. ACETAMINOPHEN AND HYDROCODONE BITARTRATE [Suspect]
     Indication: PAIN
     Dosage: 2 TABS PRN
  8. METHADOSE [Suspect]
     Indication: PAIN
     Dosage: 10 MG EVERY 6 HRS
     Route: 048
  9. KETOROLAC TROMETHAMINE [Suspect]
     Indication: PAIN
     Dosage: UNK

REACTIONS (1)
  - HYPERAESTHESIA [None]
